FAERS Safety Report 11506412 (Version 1)
Quarter: 2015Q3

REPORT INFORMATION
  Report Type: Spontaneous
  Country: FR (occurrence: FR)
  Receive Date: 20150915
  Receipt Date: 20150915
  Transmission Date: 20151125
  Serious: Yes (Other)
  Sender: FDA-Public Use
  Company Number: FR-TEVA-517393ISR

PATIENT
  Age: 66 Year
  Sex: Male

DRUGS (1)
  1. ALFUZOSINE TEVA [Suspect]
     Active Substance: ALFUZOSIN HYDROCHLORIDE
     Indication: PROSTATIC ADENOMA
     Dosage: 1 DOSAGE FORMS DAILY;
     Route: 048
     Dates: start: 20131003, end: 20131024

REACTIONS (2)
  - Drug ineffective [Recovered/Resolved]
  - Enuresis [Recovered/Resolved]

NARRATIVE: CASE EVENT DATE: 20131003
